FAERS Safety Report 25962275 (Version 1)
Quarter: 2025Q4

REPORT INFORMATION
  Report Type: Spontaneous
  Country: US (occurrence: None)
  Receive Date: 20251024
  Receipt Date: 20251024
  Transmission Date: 20260119
  Serious: Yes (Disabling, Other)
  Sender: FDA-CTU
  Company Number: None

PATIENT
  Age: 68 Year
  Sex: Female
  Weight: 60.75 kg

DRUGS (6)
  1. JEUVEAU [Suspect]
     Active Substance: PRABOTULINUMTOXINA-XVFS
     Indication: Skin wrinkling
     Route: 058
     Dates: start: 20250722, end: 20250806
  2. LIALDA [Concomitant]
     Active Substance: MESALAMINE
  3. VITAMIN C [Concomitant]
     Active Substance: ASCORBIC ACID
  4. VITAMIN B COMPLEX [Concomitant]
     Active Substance: CYANOCOBALAMIN\DEXPANTHENOL\NIACINAMIDE\PYRIDOXINE HYDROCHLORIDE\RIBOFLAVIN 5^-PHOSPHATE SODIUM\THIA
  5. FISH OIL [Concomitant]
     Active Substance: FISH OIL
  6. CALCIUM [Concomitant]
     Active Substance: CALCIUM

REACTIONS (5)
  - Drug ineffective [None]
  - Headache [None]
  - Musculoskeletal stiffness [None]
  - Dysphagia [None]
  - Nonspecific reaction [None]

NARRATIVE: CASE EVENT DATE: 20250722
